FAERS Safety Report 20808635 (Version 2)
Quarter: 2022Q3

REPORT INFORMATION
  Report Type: Spontaneous
  Country: GB (occurrence: GB)
  Receive Date: 20220510
  Receipt Date: 20220701
  Transmission Date: 20221026
  Serious: No
  Sender: FDA-Public Use
  Company Number: GB-PFIZER INC-202200498694

PATIENT

DRUGS (1)
  1. NIMENRIX [Suspect]
     Active Substance: CLOSTRIDIUM TETANI TOXOID ANTIGEN (FORMALDEHYDE INACTIVATED)\MENINGOCOCCAL POLYSACCHARIDE VACCINE, G
     Indication: Immunisation
     Dosage: DOSE NUMBER UNKNOWN, SINGLE

REACTIONS (4)
  - Injury associated with device [Unknown]
  - Accidental exposure to product [Unknown]
  - Administration site swelling [Unknown]
  - Administration site discolouration [Unknown]
